FAERS Safety Report 8057337-7 (Version None)
Quarter: 2012Q1

REPORT INFORMATION
  Report Type: 
  Country: None (occurrence: None)
  Receive Date: 20120119
  Receipt Date: 20120113
  Transmission Date: 20120608
  Serious: Yes (Death, Hospitalization)
  Sender: FDA-Public Use
  Company Number: LT-ABBOTT-12P-234-0892288-00

PATIENT
  Sex: Female
  Weight: 65 kg

DRUGS (6)
  1. PREDUCTAL MR [Concomitant]
     Indication: CARDIAC DISORDER
     Dosage: 70MG DAILY, (35MG, 2 IN 1 DAY)
     Route: 048
     Dates: start: 20100101
  2. DIMEDROLUM [Concomitant]
     Indication: RHEUMATOID ARTHRITIS
     Dates: start: 20111114
  3. METOPROLOLUM [Concomitant]
     Indication: CARDIAC DISORDER
     Route: 048
     Dates: start: 20100101
  4. METHOTREXATE SODIUM [Concomitant]
     Indication: RHEUMATOID ARTHRITIS
     Dates: end: 20111114
  5. HUMIRA [Suspect]
     Indication: RHEUMATOID ARTHRITIS
     Route: 058
     Dates: start: 20081016, end: 20111001
  6. DICLOFENACUM [Concomitant]
     Indication: PAIN

REACTIONS (5)
  - SEPSIS [None]
  - ADENOCARCINOMA [None]
  - DEATH [None]
  - RESPIRATORY TRACT INFECTION FUNGAL [None]
  - TUBERCULOSIS [None]
